FAERS Safety Report 6149772-9 (Version None)
Quarter: 2009Q2

REPORT INFORMATION
  Report Type: 
  Country: None (occurrence: None)
  Receive Date: 20090402
  Receipt Date: 20081203
  Transmission Date: 20091009
  Serious: Yes (Other)
  Sender: FDA-Public Use
  Company Number: 2008SU0294

PATIENT
  Age: 70 Year
  Sex: Female
  Weight: 60.782 kg

DRUGS (3)
  1. SULAR [Suspect]
     Indication: HYPERTENSION
     Dosage: 8.5MG, DAILY 8.5MG, TWICE DAILY IN THE AM
     Dates: start: 20080801, end: 20081130
  2. SULAR [Suspect]
     Indication: HYPERTENSION
     Dates: start: 20081204
  3. ASPIRIN [Concomitant]

REACTIONS (2)
  - DRUG INEFFECTIVE [None]
  - FATIGUE [None]
